FAERS Safety Report 6110688-5 (Version None)
Quarter: 2009Q1

REPORT INFORMATION
  Report Type: 
  Country: None (occurrence: None)
  Receive Date: 20090309
  Receipt Date: 20090209
  Transmission Date: 20090719
  Serious: Yes (Other)
  Sender: FDA-Public Use
  Company Number: 205541

PATIENT
  Sex: Male

DRUGS (6)
  1. VINCRISTINE SULFATE [Suspect]
     Indication: EWING'S SARCOMA
     Dosage: 3 MG/M2
  2. CYCLOPHOSPHAMIDE [Suspect]
     Indication: EWING'S SARCOMA
     Dosage: 0.23-0.27 G/M^2/WK
  3. DOXORUBICIN HCL [Suspect]
     Indication: EWING'S SARCOMA
     Dosage: 7.8 MG/M^2/WK
  4. ETOPOSIDE [Suspect]
     Indication: EWING'S SARCOMA
     Dosage: 83.3 MG/M^2/WK
  5. IFOSFAMIDE [Suspect]
     Indication: EWING'S SARCOMA
     Dosage: 1.5 G/M^2/ WK
  6. NEUPOGEN [Suspect]
     Indication: EWING'S SARCOMA

REACTIONS (1)
  - ACUTE MYELOID LEUKAEMIA [None]
